FAERS Safety Report 23518510 (Version 1)
Quarter: 2024Q1

REPORT INFORMATION
  Report Type: Spontaneous
  Country: IT (occurrence: IT)
  Receive Date: 20240213
  Receipt Date: 20240213
  Transmission Date: 20240410
  Serious: Yes (Other)
  Sender: FDA-Public Use
  Company Number: IT-SUN PHARMACEUTICAL INDUSTRIES LTD-2024RR-430965

PATIENT
  Age: 54 Year
  Sex: Male
  Weight: 84 kg

DRUGS (1)
  1. SONIDEGIB [Suspect]
     Active Substance: SONIDEGIB
     Indication: Basal cell naevus syndrome
     Dosage: 200 MILLIGRAM, DAILY
     Route: 065
     Dates: start: 202105

REACTIONS (2)
  - Therapy partial responder [Unknown]
  - Muscle spasms [Unknown]
